FAERS Safety Report 9720687 (Version 2)
Quarter: 2014Q1

REPORT INFORMATION
  Report Type: Report from Study
  Country: AR (occurrence: AR)
  Receive Date: 20131129
  Receipt Date: 20140127
  Transmission Date: 20141002
  Serious: Yes (Other)
  Sender: FDA-Public Use
  Company Number: PHHY2013AR137541

PATIENT
  Age: 58 Year
  Sex: Female

DRUGS (2)
  1. ONBREZ [Suspect]
     Indication: EMPHYSEMA
     Dosage: 150 UG, DAILY
     Route: 055
     Dates: start: 20131029
  2. ONBREZ [Suspect]
     Indication: OFF LABEL USE

REACTIONS (4)
  - Blood cholesterol abnormal [Not Recovered/Not Resolved]
  - Agitation [Not Recovered/Not Resolved]
  - Local swelling [Not Recovered/Not Resolved]
  - General physical health deterioration [Unknown]
